FAERS Safety Report 10606423 (Version 1)
Quarter: 2014Q4

REPORT INFORMATION
  Report Type: Spontaneous
  Country: IT (occurrence: IT)
  Receive Date: 20141125
  Receipt Date: 20141125
  Transmission Date: 20150529
  Serious: Yes (Other)
  Sender: FDA-Public Use
  Company Number: IT-009507513-1411ITA008438

PATIENT
  Age: 41 Year
  Sex: Male

DRUGS (1)
  1. TEMODAL [Suspect]
     Active Substance: TEMOZOLOMIDE
     Indication: OLIGODENDROGLIOMA
     Dosage: 200 MG/M2, QD (FOR 5 DAYS IN A 28-DAY CYCLE)
     Dates: start: 2009, end: 201210

REACTIONS (1)
  - T-cell type acute leukaemia [Unknown]

NARRATIVE: CASE EVENT DATE: 201310
